FAERS Safety Report 6397257-7 (Version None)
Quarter: 2009Q4

REPORT INFORMATION
  Report Type: 
  Country: None (occurrence: None)
  Receive Date: 20091012
  Receipt Date: 20091005
  Transmission Date: 20100525
  Serious: Yes (Other)
  Sender: FDA-Public Use
  Company Number: US-MERCK-0907USA04621

PATIENT
  Sex: Female

DRUGS (3)
  1. PRINIVIL [Suspect]
     Route: 048
     Dates: start: 19890619
  2. CRESTOR [Concomitant]
     Route: 065
  3. XANAX [Concomitant]
     Route: 065

REACTIONS (2)
  - ADVERSE EVENT [None]
  - DEAFNESS [None]
